FAERS Safety Report 6209251-7 (Version None)
Quarter: 2009Q2

REPORT INFORMATION
  Report Type: 
  Country: None (occurrence: None)
  Receive Date: 20090529
  Receipt Date: 20090512
  Transmission Date: 20091009
  Serious: Yes (Hospitalization, Disabling, Other)
  Sender: FDA-Public Use
  Company Number: PHHY2009JP08068

PATIENT
  Sex: Male
  Weight: 71 kg

DRUGS (8)
  1. VOLTAREN [Suspect]
     Indication: PYREXIA
     Dosage: 50 MG/D
     Route: 054
     Dates: start: 20090224
  2. VOLTAREN [Suspect]
     Dosage: 100 MG DAILY
     Route: 054
     Dates: end: 20090302
  3. NEOPAREN [Concomitant]
  4. DIPRIVAN [Concomitant]
  5. ULTIVA [Concomitant]
  6. CEFMETAZON [Concomitant]
  7. ALBUMIN (HUMAN) [Concomitant]
  8. TAKEPRON [Concomitant]

REACTIONS (8)
  - ABDOMINAL WOUND DEHISCENCE [None]
  - ANURIA [None]
  - DEHYDRATION [None]
  - POST PROCEDURAL COMPLICATION [None]
  - RENAL FAILURE ACUTE [None]
  - RENAL FAILURE CHRONIC [None]
  - RENAL IMPAIRMENT [None]
  - SYSTEMIC INFLAMMATORY RESPONSE SYNDROME [None]
